FAERS Safety Report 4423592-5 (Version None)
Quarter: 2004Q3

REPORT INFORMATION
  Report Type: 
  Country: None (occurrence: None)
  Receive Date: 20040719
  Receipt Date: 20040406
  Transmission Date: 20050211
  Serious: Yes (Other)
  Sender: FDA-Public Use
  Company Number: M04-INT-068

PATIENT
  Sex: Male
  Weight: 156 kg

DRUGS (3)
  1. INTEGRILIN [Suspect]
     Indication: CORONARY ANGIOPLASTY
  2. HEPARIN [Concomitant]
  3. CONTRAST MEDIA [Concomitant]

REACTIONS (2)
  - HYPERSENSITIVITY [None]
  - THROMBOCYTOPENIA [None]
